FAERS Safety Report 14331382 (Version 2)
Quarter: 2018Q1

REPORT INFORMATION
  Report Type: Spontaneous
  Country: None (occurrence: DE)
  Receive Date: 20171228
  Receipt Date: 20180307
  Transmission Date: 20180509
  Serious: Yes (Other)
  Sender: FDA-Public Use
  Company Number: DE-MERCK KGAA-2037862

PATIENT
  Age: 39 Year
  Sex: Female
  Weight: 120 kg

DRUGS (3)
  1. FOLIO [Suspect]
     Active Substance: FOLIC ACID
     Route: 048
  2. NOVOTHYROX [Suspect]
     Active Substance: LEVOTHYROXINE SODIUM
     Indication: HYPOTHYROIDISM
     Route: 048
  3. ABILIFY [Suspect]
     Active Substance: ARIPIPRAZOLE
     Route: 048
     Dates: start: 20150605, end: 20160226

REACTIONS (5)
  - Pre-eclampsia [Unknown]
  - Maternal exposure during pregnancy [Recovered/Resolved]
  - Complication of pregnancy [Unknown]
  - Gestational diabetes [Recovered/Resolved]
  - Product use issue [Unknown]
